FAERS Safety Report 12573024 (Version 1)
Quarter: 2016Q3

REPORT INFORMATION
  Report Type: Spontaneous
  Country: US (occurrence: None)
  Receive Date: 20160719
  Receipt Date: 20160719
  Transmission Date: 20161109
  Serious: Yes (Other)
  Sender: FDA-Public Use
  Company Number: None

PATIENT
  Age: 39 Year
  Sex: Male
  Weight: 68.3 kg

DRUGS (1)
  1. IFOSFAMIDE. [Suspect]
     Active Substance: IFOSFAMIDE
     Route: 042
     Dates: start: 20160316

REACTIONS (5)
  - Neurotoxicity [None]
  - Balance disorder [None]
  - Dyskinesia [None]
  - Confusional state [None]
  - Somnolence [None]

NARRATIVE: CASE EVENT DATE: 20160316
